FAERS Safety Report 6163750-5 (Version None)
Quarter: 2009Q2

REPORT INFORMATION
  Report Type: 
  Country: None (occurrence: None)
  Receive Date: 20090420
  Receipt Date: 20090420
  Transmission Date: 20091009
  Serious: No
  Sender: FDA-Public Use
  Company Number: None

PATIENT

DRUGS (20)
  1. OXYCODONE 1 MG/1 ML SOLUTION [Suspect]
     Dosage: 2.5 MG Q4H ORAL
     Route: 048
     Dates: start: 20090406, end: 20090420
  2. ALLEGRA (FEXOFENADINE HCL) [Concomitant]
  3. AMBIEN [Concomitant]
  4. ASA (CHILDRENS) (ACETYLSALICYLIC ACID (CHILDRENS)) [Concomitant]
  5. ATROVENT HFA INHALER (IPRATROPIUM INHALER) [Concomitant]
  6. TROVENT NASAL 0.06% (IPRATROPIUM NASAL 0.06%) [Concomitant]
  7. BACTROBAN [Concomitant]
  8. CALCIUM CITRATE [Concomitant]
  9. ELIMITE (PERMETHRIN CREAM) [Concomitant]
  10. IBUPROFEN [Concomitant]
  11. LIDEX [Concomitant]
  12. LIPITOR [Concomitant]
  13. MEGA-WOMAN VITAMINS [Concomitant]
  14. NORVASC [Concomitant]
  15. AMEPRAZOLE [Concomitant]
  16. TRAZODONE HCL [Concomitant]
  17. VITAMIN B COMPLEX CAP [Concomitant]
  18. ASCORBIC ACID [Concomitant]
  19. VITAMIN D2 (ERGOCALCIFEROL) [Concomitant]
  20. ZOLOFT [Concomitant]

REACTIONS (2)
  - DRUG INTOLERANCE [None]
  - GASTROINTESTINAL DISORDER [None]
